FAERS Safety Report 22185922 (Version 1)
Quarter: 2023Q2

REPORT INFORMATION
  Report Type: Spontaneous
  Country: US (occurrence: US)
  Receive Date: 20230407
  Receipt Date: 20230407
  Transmission Date: 20230722
  Serious: No
  Sender: FDA-Public Use
  Company Number: US-TEVA-2023-US-2870640

PATIENT
  Sex: Female

DRUGS (1)
  1. ADDERALL [Suspect]
     Active Substance: AMPHETAMINE ASPARTATE\AMPHETAMINE SULFATE\DEXTROAMPHETAMINE SACCHARATE\DEXTROAMPHETAMINE SULFATE
     Indication: Attention deficit hyperactivity disorder
     Route: 065

REACTIONS (9)
  - Fatigue [Unknown]
  - Apathy [Unknown]
  - Anxiety [Unknown]
  - Depression [Unknown]
  - Disturbance in attention [Unknown]
  - Brain fog [Unknown]
  - Feeling abnormal [Unknown]
  - Product availability issue [Unknown]
  - Feeling abnormal [Unknown]
